FAERS Safety Report 16675690 (Version 1)
Quarter: 2019Q3

REPORT INFORMATION
  Report Type: Spontaneous
  Country: TR (occurrence: TR)
  Receive Date: 20190806
  Receipt Date: 20190806
  Transmission Date: 20191004
  Serious: Yes (Death)
  Sender: FDA-Public Use
  Company Number: PHHY2019TR182456

PATIENT
  Age: 90 Year
  Sex: Female

DRUGS (1)
  1. DIOVAN [Suspect]
     Active Substance: VALSARTAN
     Indication: BLOOD PRESSURE ABNORMAL
     Dosage: 1 DF, QD (MORNING)
     Route: 065

REACTIONS (2)
  - Cerebral infarction [Fatal]
  - Coma [Fatal]

NARRATIVE: CASE EVENT DATE: 201806
